FAERS Safety Report 11449266 (Version 1)
Quarter: 2015Q3

REPORT INFORMATION
  Report Type: Spontaneous
  Country: JP (occurrence: JP)
  Receive Date: 20150902
  Receipt Date: 20150902
  Transmission Date: 20151125
  Serious: Yes (Hospitalization, Other)
  Sender: FDA-Public Use
  Company Number: JP-CONCORDIA PHARMACEUTICALS INC.-CO-ZN-JP-2015-007

PATIENT
  Age: 72 Year
  Sex: Male

DRUGS (5)
  1. WAKOBITAL [Concomitant]
     Route: 065
     Dates: start: 20150206
  2. RISPERDAL [Concomitant]
     Active Substance: RISPERIDONE
     Route: 065
     Dates: start: 201412
  3. PHENOBAL [Concomitant]
     Active Substance: PHENOBARBITAL
     Route: 065
  4. HEPARIN [Concomitant]
     Active Substance: HEPARIN SODIUM
     Route: 065
     Dates: start: 20150207
  5. ZANTAC [Suspect]
     Active Substance: RANITIDINE HYDROCHLORIDE
     Indication: UPPER GASTROINTESTINAL HAEMORRHAGE
     Dates: start: 20150207, end: 20150421

REACTIONS (2)
  - Platelet count decreased [Not Recovered/Not Resolved]
  - Immune thrombocytopenic purpura [Unknown]

NARRATIVE: CASE EVENT DATE: 20150420
